FAERS Safety Report 19615764 (Version 2)
Quarter: 2021Q4

REPORT INFORMATION
  Report Type: Spontaneous
  Country: BR (occurrence: BR)
  Receive Date: 20210727
  Receipt Date: 20211019
  Transmission Date: 20220303
  Serious: Yes (Other)
  Sender: FDA-Public Use
  Company Number: BR-PFIZER INC-2021892270

PATIENT
  Age: 71 Year
  Sex: Female
  Weight: 57 kg

DRUGS (4)
  1. XALATAN [Suspect]
     Active Substance: LATANOPROST
     Indication: Intraocular pressure increased
     Dosage: 1 DROP, 1X/DAY (AT NIGHT)
  2. XALATAN [Suspect]
     Active Substance: LATANOPROST
     Dosage: UNK
  3. XALATAN [Suspect]
     Active Substance: LATANOPROST
     Dosage: UNK
  4. XALATAN [Suspect]
     Active Substance: LATANOPROST
     Dosage: UNK

REACTIONS (1)
  - Cataract [Not Recovered/Not Resolved]
